FAERS Safety Report 9889391 (Version 1)
Quarter: 2014Q1

REPORT INFORMATION
  Report Type: Spontaneous
  Country: DE (occurrence: DE)
  Receive Date: 20140211
  Receipt Date: 20140211
  Transmission Date: 20141002
  Serious: Yes (Other)
  Sender: FDA-Public Use
  Company Number: CHPA2014DE002445

PATIENT
  Age: 71 Year
  Sex: Male

DRUGS (3)
  1. SCOPODERM TTS [Suspect]
     Indication: SECRETION DISCHARGE
     Dosage: UNK
     Route: 062
     Dates: start: 2013, end: 201401
  2. SCOPODERM TTS [Suspect]
     Indication: SALIVARY HYPERSECRETION
  3. SCOPODERM TTS [Suspect]
     Indication: OFF LABEL USE

REACTIONS (10)
  - Vocal cord paralysis [Not Recovered/Not Resolved]
  - Speech disorder [Not Recovered/Not Resolved]
  - Dyspnoea [Not Recovered/Not Resolved]
  - Erythema [Not Recovered/Not Resolved]
  - Local swelling [Not Recovered/Not Resolved]
  - Blister [Not Recovered/Not Resolved]
  - Disease recurrence [Not Recovered/Not Resolved]
  - Visual acuity reduced [Not Recovered/Not Resolved]
  - Dry mouth [Not Recovered/Not Resolved]
  - Dizziness [Not Recovered/Not Resolved]
